FAERS Safety Report 7543121-7 (Version None)
Quarter: 2011Q2

REPORT INFORMATION
  Report Type: 
  Country: None (occurrence: None)
  Receive Date: 20110613
  Receipt Date: 20110608
  Transmission Date: 20111010
  Serious: Yes (Death)
  Sender: FDA-Public Use
  Company Number: PHHY2011FR50380

PATIENT

DRUGS (2)
  1. DEPAKENE [Suspect]
     Route: 064
  2. TEGRETOL [Suspect]
     Route: 064

REACTIONS (2)
  - INTRA-UTERINE DEATH [None]
  - DRUG EXPOSURE DURING PREGNANCY [None]
